FAERS Safety Report 12864272 (Version 1)
Quarter: 2016Q4

REPORT INFORMATION
  Report Type: Spontaneous
  Country: US (occurrence: US)
  Receive Date: 20161020
  Receipt Date: 20161020
  Transmission Date: 20170207
  Serious: Yes (Hospitalization, Other)
  Sender: FDA-Public Use
  Company Number: US-TEVA-634702USA

PATIENT
  Age: 63 Year
  Sex: Male
  Weight: 98.06 kg

DRUGS (2)
  1. TOFACITINIB CITRATE [Suspect]
     Active Substance: TOFACITINIB CITRATE
     Indication: RHEUMATOID ARTHRITIS
     Dosage: 20 MILLIGRAM DAILY;
     Route: 048
     Dates: start: 20150216, end: 20151227
  2. METHOTREXATE. [Suspect]
     Active Substance: METHOTREXATE
     Indication: RHEUMATOID ARTHRITIS
     Dosage: 2.8571 MILLIGRAM DAILY;
     Route: 048
     Dates: start: 20140919, end: 20151227

REACTIONS (1)
  - Pneumonia [Recovered/Resolved]

NARRATIVE: CASE EVENT DATE: 20151228
